FAERS Safety Report 13572894 (Version 1)
Quarter: 2017Q2

REPORT INFORMATION
  Report Type: Spontaneous
  Country: DE (occurrence: DE)
  Receive Date: 20170523
  Receipt Date: 20170523
  Transmission Date: 20170830
  Serious: Yes (Life-Threatening, Hospitalization, Disabling, Other)
  Sender: FDA-Public Use
  Company Number: DE-TEVA-768123GER

PATIENT
  Age: 63 Year
  Sex: Female
  Weight: 95 kg

DRUGS (2)
  1. CLEXANE [Suspect]
     Active Substance: ENOXAPARIN SODIUM
     Indication: THROMBOSIS PROPHYLAXIS
     Dosage: .4 MILLIGRAM DAILY;
     Route: 058
     Dates: start: 20170406, end: 20170413
  2. HEPARIN [Suspect]
     Active Substance: HEPARIN SODIUM
     Indication: PERIPHERAL ARTERY BYPASS
     Dosage: 5000IE ONCE INTRAOPERATIVE JUST BEFORE THE ARTERY IS CLAMPED
     Route: 042
     Dates: start: 20170406

REACTIONS (2)
  - Heparin-induced thrombocytopenia [Recovered/Resolved with Sequelae]
  - Microembolism [Recovered/Resolved with Sequelae]

NARRATIVE: CASE EVENT DATE: 20170418
